FAERS Safety Report 22386685 (Version 4)
Quarter: 2025Q3

REPORT INFORMATION
  Report Type: Report from Study
  Country: US (occurrence: US)
  Receive Date: 20230531
  Receipt Date: 20250812
  Transmission Date: 20251020
  Serious: Yes (Death, Hospitalization)
  Sender: ABBVIE
  Company Number: US-ABBVIE-5185010

PATIENT
  Age: 73 Year
  Sex: Male

DRUGS (1)
  1. VENCLEXTA [Suspect]
     Active Substance: VENETOCLAX
     Indication: Acute myeloid leukaemia
     Dosage: 1 BOTTLE CONTAINING 28 X 100 MG TABLETS, QUANTITY: 30 (MONTHLY), STRENGTH: 100 MG
     Route: 048

REACTIONS (4)
  - Death [Fatal]
  - Blood pressure abnormal [Unknown]
  - Off label use [Unknown]
  - Tooth abscess [Unknown]

NARRATIVE: CASE EVENT DATE: 20250316
